FAERS Safety Report 13237003 (Version 1)
Quarter: 2017Q1

REPORT INFORMATION
  Report Type: Report from Study
  Country: US (occurrence: US)
  Receive Date: 20170215
  Receipt Date: 20170215
  Transmission Date: 20170428
  Serious: Yes (Other)
  Sender: FDA-Public Use
  Company Number: US-KADMON PHARMACEUTICALS, LLC-KAD201702-000380

PATIENT
  Sex: Male

DRUGS (7)
  1. ATIVAN [Concomitant]
     Active Substance: LORAZEPAM
  2. VOLTAREN [Concomitant]
     Active Substance: DICLOFENAC SODIUM
  3. RIBAVIRIN 200 MG TABLETS [Suspect]
     Active Substance: RIBAVIRIN
     Indication: HEPATITIS C
     Route: 048
     Dates: start: 20161207
  4. OXYCODONE [Concomitant]
     Active Substance: OXYCODONE
  5. VIEKIRA PAK [Suspect]
     Active Substance: DASABUVIR\OMBITASVIR\PARITAPREVIR\RITONAVIR
     Indication: HEPATITIS C
     Dosage: TABLET
     Route: 048
     Dates: start: 20161207
  6. AMBIEN [Concomitant]
     Active Substance: ZOLPIDEM TARTRATE
  7. QUININE SULFATE. [Concomitant]
     Active Substance: QUININE SULFATE

REACTIONS (3)
  - Abdominal pain upper [Not Recovered/Not Resolved]
  - Somnolence [Not Recovered/Not Resolved]
  - Haemoptysis [Not Recovered/Not Resolved]
